FAERS Safety Report 5673992-0 (Version None)
Quarter: 2008Q1

REPORT INFORMATION
  Report Type: 
  Country: None (occurrence: None)
  Receive Date: 20080319
  Receipt Date: 20080319
  Transmission Date: 20080703
  Serious: Yes (Life-Threatening)
  Sender: FDA-Public Use
  Company Number: None

PATIENT
  Age: 21 Year
  Sex: Male
  Weight: 79 kg

DRUGS (1)
  1. ACETYLCYSTEINE [Suspect]
     Indication: OVERDOSE
     Dosage: 11700 MG OTO IV
     Route: 042
     Dates: start: 20071105

REACTIONS (3)
  - DYSPNOEA [None]
  - FLUSHING [None]
  - TACHYCARDIA [None]
